FAERS Safety Report 10610944 (Version 2)
Quarter: 2014Q4

REPORT INFORMATION
  Report Type: Report from Study
  Country: US (occurrence: US)
  Receive Date: 20141126
  Receipt Date: 20141126
  Transmission Date: 20150529
  Serious: Yes (Other)
  Sender: FDA-Public Use
  Company Number: US-ACTELION-A-US2013-90334

PATIENT
  Age: 60 Year
  Sex: Female

DRUGS (4)
  1. TRACLEER [Suspect]
     Active Substance: BOSENTAN\BOSENTAN MONOHYDRATE
     Indication: PULMONARY ARTERIAL HYPERTENSION
     Dosage: UNK
     Route: 048
     Dates: start: 200407
  2. LASIX [Concomitant]
     Active Substance: FUROSEMIDE
  3. COUMADIN [Concomitant]
     Active Substance: WARFARIN SODIUM
  4. POTASSIUM CHLORIDE. [Concomitant]
     Active Substance: POTASSIUM CHLORIDE

REACTIONS (6)
  - Syncope [Recovering/Resolving]
  - Cough [Recovering/Resolving]
  - Thyrotoxic crisis [Unknown]
  - Autoimmune thyroiditis [Recovering/Resolving]
  - Goitre [Recovering/Resolving]
  - Dizziness [Unknown]
